FAERS Safety Report 25528783 (Version 1)
Quarter: 2025Q3

REPORT INFORMATION
  Report Type: Spontaneous
  Country: IN (occurrence: IN)
  Receive Date: 20250708
  Receipt Date: 20250708
  Transmission Date: 20251020
  Serious: Yes (Hospitalization, Other)
  Sender: Norvium Bioscience
  Company Number: IN-Norvium Bioscience LLC-080350

PATIENT
  Age: 74 Year
  Sex: Female
  Weight: 55 kg

DRUGS (20)
  1. VALPROATE SODIUM [Suspect]
     Active Substance: VALPROATE SODIUM
     Indication: Paraesthesia
  2. SPIRONOLACTONE [Suspect]
     Active Substance: SPIRONOLACTONE
     Indication: Peripheral swelling
  3. CARBIDOPA AND LEVODOPA [Suspect]
     Active Substance: CARBIDOPA\LEVODOPA
     Indication: Tremor
  4. LEVOSULPIRIDE\RABEPRAZOLE [Suspect]
     Active Substance: LEVOSULPIRIDE\RABEPRAZOLE
     Indication: Gastritis
     Dosage: 75/20 MG
  5. GLICLAZIDE [Concomitant]
     Active Substance: GLICLAZIDE
     Indication: Diabetes mellitus
  6. ATORVASTATIN [Concomitant]
     Active Substance: ATORVASTATIN
     Indication: Product used for unknown indication
     Dosage: HIGH DOSE
  7. ACETAMINOPHEN [Concomitant]
     Active Substance: ACETAMINOPHEN
     Indication: Back pain
  8. BETAHISTINE [Concomitant]
     Active Substance: BETAHISTINE
     Indication: Vertigo
  9. VILDAGLIPTIN [Concomitant]
     Active Substance: VILDAGLIPTIN
     Indication: Diabetes mellitus
  10. FLUTICASONE,FORMOTEROL [Concomitant]
     Indication: Product used for unknown indication
  11. PRAMIPEXOLE [Concomitant]
     Active Substance: PRAMIPEXOLE
     Indication: Tremor
  12. METFORMIN [Concomitant]
     Active Substance: METFORMIN HYDROCHLORIDE
     Indication: Diabetes mellitus
     Dosage: 500 MG 1.5 TAB
  13. CLIDINIUM C [Concomitant]
     Indication: Abdominal symptom
     Dosage: 2.5/5 MG
  14. BETHANECHOL [Concomitant]
     Active Substance: BETHANECHOL
     Indication: Urinary retention
  15. SILODOSIN [Concomitant]
     Active Substance: SILODOSIN
     Indication: Urinary retention
  16. VITAMIN D [Concomitant]
     Active Substance: VITAMIN D NOS
     Indication: Product used for unknown indication
     Dosage: 60000 UNITS
  17. INSULIN GLARGINE [Concomitant]
     Active Substance: INSULIN GLARGINE
     Indication: Diabetes mellitus
  18. CARBIDOPA AND LEVODOPA [Suspect]
     Active Substance: CARBIDOPA\LEVODOPA
     Indication: Gait disturbance
  19. PRAMIPEXOLE [Concomitant]
     Active Substance: PRAMIPEXOLE
     Indication: Gait disturbance
  20. ACETAMINOPHEN [Concomitant]
     Active Substance: ACETAMINOPHEN
     Indication: Arthralgia

REACTIONS (4)
  - Inappropriate antidiuretic hormone secretion [Recovering/Resolving]
  - Hyperkalaemia [Recovering/Resolving]
  - Tremor [Recovering/Resolving]
  - Nausea [Recovering/Resolving]
